FAERS Safety Report 13659500 (Version 2)
Quarter: 2017Q2

REPORT INFORMATION
  Report Type: Spontaneous
  Country: JP (occurrence: JP)
  Receive Date: 20170616
  Receipt Date: 20170622
  Transmission Date: 20170830
  Serious: Yes (Death, Other)
  Sender: FDA-Public Use
  Company Number: JP-GLAXOSMITHKLINE-JP2017JPN090008

PATIENT
  Age: 55 Year
  Sex: Male

DRUGS (12)
  1. ACYCLOVIR. [Suspect]
     Active Substance: ACYCLOVIR
     Indication: INFECTION PROPHYLAXIS
     Dosage: UNK
     Route: 041
  2. PREDNISOLONE. [Concomitant]
     Active Substance: PREDNISOLONE
     Dosage: 1 MG/KG, 1D
  3. AMPHOTERICIN B. [Concomitant]
     Active Substance: AMPHOTERICIN B
     Dosage: UNK
  4. BORTEZOMIB [Concomitant]
     Active Substance: BORTEZOMIB
     Indication: PLASMA CELL LEUKAEMIA
     Dosage: UNK
  5. DEXAMETHASONE. [Concomitant]
     Active Substance: DEXAMETHASONE
     Indication: PLASMA CELL LEUKAEMIA
     Dosage: UNK
  6. PIPERACILLIN SODIUM + TAZOBACTAM SODIUM [Concomitant]
     Indication: INFECTION PROPHYLAXIS
     Dosage: UNK
  7. METHOTREXATE. [Concomitant]
     Active Substance: METHOTREXATE
     Indication: PROPHYLAXIS AGAINST GRAFT VERSUS HOST DISEASE
     Dosage: UNK
  8. VINCRISTINE SULFATE. [Concomitant]
     Active Substance: VINCRISTINE SULFATE
     Indication: PLASMA CELL LEUKAEMIA
     Dosage: UNK
  9. MICAFUNGIN SODIUM [Concomitant]
     Active Substance: MICAFUNGIN SODIUM
     Indication: INFECTION PROPHYLAXIS
     Dosage: UNK
  10. DOXORUBICIN HYDROCHLORIDE. [Concomitant]
     Active Substance: DOXORUBICIN HYDROCHLORIDE
     Indication: PLASMA CELL LEUKAEMIA
     Dosage: UNK
  11. CYCLOPHOSPHAMIDE HYDRATE [Concomitant]
     Active Substance: CYCLOPHOSPHAMIDE
     Indication: PLASMA CELL LEUKAEMIA
     Dosage: UNK
  12. CICLOSPORIN [Concomitant]
     Active Substance: CYCLOSPORINE
     Indication: PROPHYLAXIS AGAINST GRAFT VERSUS HOST DISEASE
     Dosage: UNK

REACTIONS (6)
  - Pyrexia [Unknown]
  - Renal impairment [Unknown]
  - Transplant failure [Unknown]
  - Condition aggravated [Unknown]
  - Multiple organ dysfunction syndrome [Fatal]
  - Systemic candida [Unknown]
